FAERS Safety Report 6388825-7 (Version None)
Quarter: 2009Q4

REPORT INFORMATION
  Report Type: 
  Country: None (occurrence: None)
  Receive Date: 20091001
  Receipt Date: 20090916
  Transmission Date: 20100525
  Serious: Yes (Hospitalization)
  Sender: FDA-Public Use
  Company Number: 2009002824

PATIENT
  Age: 41 Year
  Sex: Male

DRUGS (5)
  1. ERLOTINIB HYDROCHLORIDE [Suspect]
     Indication: LUNG ADENOCARCINOMA
     Dosage: (150 MG,QD),ORAL
     Route: 048
     Dates: start: 20090610, end: 20090710
  2. NAIXAN (NAPROXEN SODIUM) [Concomitant]
  3. OMEPRAZOLE [Concomitant]
  4. MYSLEE [Concomitant]
  5. BROCIN-CODEINE (BROCIN-CODEINE) [Concomitant]

REACTIONS (4)
  - DECREASED APPETITE [None]
  - DISEASE PROGRESSION [None]
  - ORAL HERPES [None]
  - PAIN [None]
